FAERS Safety Report 19678624 (Version 1)
Quarter: 2021Q3

REPORT INFORMATION
  Report Type: Spontaneous
  Country: US (occurrence: US)
  Receive Date: 20210809
  Receipt Date: 20210809
  Transmission Date: 20211014
  Serious: Yes (Other)
  Sender: FDA-Public Use
  Company Number: None

PATIENT
  Age: 25 Year
  Sex: Female
  Weight: 76.7 kg

DRUGS (1)
  1. FERAHEME [Suspect]
     Active Substance: FERUMOXYTOL NON-STOICHIOMETRIC MAGNETITE
     Indication: IRON DEFICIENCY ANAEMIA
     Route: 042
     Dates: start: 20210809, end: 20210809

REACTIONS (5)
  - Infusion related reaction [None]
  - Back pain [None]
  - Dizziness [None]
  - Dyspnoea [None]
  - Exposure during pregnancy [None]

NARRATIVE: CASE EVENT DATE: 20210809
